FAERS Safety Report 9317839 (Version 1)
Quarter: 2013Q2

REPORT INFORMATION
  Report Type: Spontaneous
  Country: US (occurrence: US)
  Receive Date: 20130530
  Receipt Date: 20130530
  Transmission Date: 20140414
  Serious: No
  Sender: FDA-Public Use
  Company Number: US-GLAXOSMITHKLINE-A0987427A

PATIENT
  Age: 52 Year
  Sex: Female

DRUGS (4)
  1. VENTOLIN [Suspect]
     Indication: BRONCHOSPASM
     Route: 055
  2. LISINOPRIL [Concomitant]
  3. MOBIC [Concomitant]
  4. FLUOXETINE [Concomitant]

REACTIONS (2)
  - Palpitations [Unknown]
  - Heart rate increased [Unknown]
